FAERS Safety Report 25349883 (Version 1)
Quarter: 2025Q2

REPORT INFORMATION
  Report Type: Spontaneous
  Country: US (occurrence: US)
  Receive Date: 20250523
  Receipt Date: 20250523
  Transmission Date: 20250716
  Serious: No
  Sender: SANOFI AVENTIS
  Company Number: US-SA-2025SA141447

PATIENT
  Age: 56 Year
  Sex: Male

DRUGS (4)
  1. DUPIXENT [Suspect]
     Active Substance: DUPILUMAB
     Indication: Eczema
     Route: 058
     Dates: start: 202412, end: 202412
  2. DUPIXENT [Suspect]
     Active Substance: DUPILUMAB
     Dosage: 300 MG, QOW
     Route: 058
  3. LISINOPRIL [Suspect]
     Active Substance: LISINOPRIL
     Dates: start: 1995, end: 20250511
  4. AMLODIPINE [Suspect]
     Active Substance: AMLODIPINE BESYLATE
     Dates: start: 1995, end: 20250511

REACTIONS (3)
  - Hypotension [Recovered/Resolved]
  - Dizziness [Recovered/Resolved]
  - Weight decreased [Unknown]

NARRATIVE: CASE EVENT DATE: 20250101
